FAERS Safety Report 10236511 (Version 1)
Quarter: 2014Q2

REPORT INFORMATION
  Report Type: Spontaneous
  Country: US (occurrence: US)
  Receive Date: 20140613
  Receipt Date: 20140613
  Transmission Date: 20141212
  Serious: No
  Sender: FDA-Public Use
  Company Number: US-PFIZER INC-2014162386

PATIENT
  Age: 70 Year
  Sex: Female
  Weight: 55.78 kg

DRUGS (2)
  1. CELEBREX [Suspect]
     Indication: ARTHRALGIA
     Dosage: UNK
  2. CELEBREX [Suspect]
     Indication: ARTHRITIS

REACTIONS (9)
  - Arthropathy [Unknown]
  - Joint swelling [Unknown]
  - Rib deformity [Unknown]
  - Incorrect drug administration duration [Unknown]
  - Arthritis [Unknown]
  - Musculoskeletal pain [Unknown]
  - Pain in extremity [Unknown]
  - Musculoskeletal discomfort [Unknown]
  - Pain [Unknown]
